FAERS Safety Report 14037526 (Version 6)
Quarter: 2017Q4

REPORT INFORMATION
  Report Type: Report from Study
  Country: US (occurrence: US)
  Receive Date: 20171004
  Receipt Date: 20171026
  Transmission Date: 20180321
  Serious: Yes (Hospitalization, Other)
  Sender: FDA-Public Use
  Company Number: PHEH2017US031504

PATIENT
  Weight: 116 kg

DRUGS (10)
  1. LORAZEPAM. [Concomitant]
     Active Substance: LORAZEPAM
     Indication: PRODUCT USED FOR UNKNOWN INDICATION
     Route: 065
  2. HUMIRA [Concomitant]
     Active Substance: ADALIMUMAB
     Indication: PSORIASIS
     Dosage: 40 MG, QW
     Route: 065
     Dates: start: 20170208
  3. CELEXA [Concomitant]
     Active Substance: CITALOPRAM HYDROBROMIDE
     Indication: DEPRESSION
     Dosage: 40 MG, QD
     Route: 065
     Dates: start: 20170829
  4. LEVOTHYROXINE. [Concomitant]
     Active Substance: LEVOTHYROXINE
     Indication: HYPOTHYROIDISM
     Dosage: 112 UG, UNK
     Route: 065
     Dates: start: 1990
  5. LASIX [Concomitant]
     Active Substance: FUROSEMIDE
     Dosage: 40 MG, BID
     Route: 065
     Dates: start: 20170831
  6. WELLBUTRIN [Suspect]
     Active Substance: BUPROPION HYDROCHLORIDE
     Indication: DEPRESSION
     Dosage: 100 MG, BID
     Route: 065
     Dates: start: 20170829
  7. XANAX [Concomitant]
     Active Substance: ALPRAZOLAM
     Indication: ANXIETY
     Route: 065
  8. COSENTYX [Suspect]
     Active Substance: SECUKINUMAB
     Indication: PSORIASIS
     Dosage: 300 MG, QMO ( EVERY 4 WEEK )
     Route: 065
     Dates: start: 20170314, end: 20170810
  9. MINOCYCLINE HYDROCHLORIDE. [Suspect]
     Active Substance: MINOCYCLINE HYDROCHLORIDE
     Indication: SINUSITIS
     Dosage: 100 MG, BID
     Route: 065
     Dates: start: 20170829
  10. LASIX [Concomitant]
     Active Substance: FUROSEMIDE
     Indication: DIURETIC THERAPY
     Dosage: UNK
     Route: 065
     Dates: start: 19970101

REACTIONS (20)
  - Acute kidney injury [Recovered/Resolved]
  - Oedema peripheral [Unknown]
  - Portal hypertension [Unknown]
  - Drug-induced liver injury [Unknown]
  - Psoriasis [Unknown]
  - Hepatitis acute [Unknown]
  - Hepatomegaly [Unknown]
  - Obesity [Unknown]
  - Jaundice [Unknown]
  - Hepatic steatosis [Unknown]
  - Lung infiltration [Recovering/Resolving]
  - Haemoptysis [Unknown]
  - Thrombocytopenia [Unknown]
  - Hepatic necrosis [Unknown]
  - Chronic obstructive pulmonary disease [Unknown]
  - Pneumonia [Unknown]
  - Dermatitis exfoliative [Unknown]
  - Anaemia folate deficiency [Unknown]
  - Autoimmune hepatitis [Recovered/Resolved]
  - Splenomegaly [Unknown]

NARRATIVE: CASE EVENT DATE: 20170831
